FAERS Safety Report 18574943 (Version 2)
Quarter: 2021Q1

REPORT INFORMATION
  Report Type: Spontaneous
  Country: BE (occurrence: BE)
  Receive Date: 20201203
  Receipt Date: 20210108
  Transmission Date: 20210419
  Serious: Yes (Hospitalization)
  Sender: FDA-Public Use
  Company Number: BE-PFIZER INC-2020474465

PATIENT
  Sex: Male
  Weight: 72 kg

DRUGS (7)
  1. MEDROL [Suspect]
     Active Substance: METHYLPREDNISOLONE
     Indication: ORGANISING PNEUMONIA
     Dosage: 32 MG
     Dates: start: 20200826, end: 20200901
  2. MEDROL [Suspect]
     Active Substance: METHYLPREDNISOLONE
     Dosage: 32 MG
     Dates: start: 20201023, end: 20201026
  3. MEDROL [Suspect]
     Active Substance: METHYLPREDNISOLONE
     Dosage: 8 MG
     Dates: start: 20200923, end: 20201009
  4. MEDROL [Suspect]
     Active Substance: METHYLPREDNISOLONE
     Dosage: 24 MG
     Dates: start: 20200902, end: 20200908
  5. MEDROL [Suspect]
     Active Substance: METHYLPREDNISOLONE
     Dosage: 24 MG
     Dates: start: 20201026, end: 20201101
  6. MEDROL [Suspect]
     Active Substance: METHYLPREDNISOLONE
     Dosage: 16 MG
     Dates: start: 20201102
  7. MEDROL [Suspect]
     Active Substance: METHYLPREDNISOLONE
     Dosage: 16 MG
     Dates: start: 20200909, end: 20200922

REACTIONS (8)
  - C-reactive protein increased [Unknown]
  - Cushingoid [Unknown]
  - Muscle spasms [Unknown]
  - Micturition urgency [Unknown]
  - Hyperhidrosis [Unknown]
  - Arthralgia [Unknown]
  - Middle insomnia [Unknown]
  - Polyuria [Unknown]

NARRATIVE: CASE EVENT DATE: 20201112
